FAERS Safety Report 10049043 (Version 1)
Quarter: 2014Q1

REPORT INFORMATION
  Report Type: Report from Study
  Country: US (occurrence: US)
  Receive Date: 20140331
  Receipt Date: 20140331
  Transmission Date: 20141002
  Serious: No
  Sender: FDA-Public Use
  Company Number: US-ASTRAZENECA-2014SE17386

PATIENT
  Age: 60 Year
  Sex: Female
  Weight: 92.1 kg

DRUGS (10)
  1. NEXIUM [Suspect]
     Indication: GASTROOESOPHAGEAL REFLUX DISEASE
     Route: 048
     Dates: start: 2003, end: 20140307
  2. LISINOPRIL/HCTZ [Suspect]
     Indication: BLOOD PRESSURE ABNORMAL
     Dosage: 1 TAB DAILY
     Route: 048
  3. METFORMIN [Concomitant]
     Indication: DIABETES MELLITUS
     Route: 048
     Dates: start: 201312
  4. GLIPIZIDE [Concomitant]
     Indication: DIABETES MELLITUS
     Route: 048
     Dates: start: 2013
  5. LEVOTHYROXINE [Concomitant]
     Indication: THYROID DISORDER
     Dosage: 200MCG DAILY
     Route: 048
  6. PRAVASTATIN [Concomitant]
     Indication: BLOOD CHOLESTEROL
     Route: 048
  7. CARVIDOLOL [Concomitant]
     Indication: HYPERTENSION
     Route: 048
     Dates: start: 2004
  8. B12 [Concomitant]
     Indication: ASTHENIA
     Dosage: 5000 DAILY
     Route: 048
     Dates: start: 2004
  9. NAPROXEN [Concomitant]
     Indication: ARTHRITIS
     Route: 048
  10. GABAPENTIN [Concomitant]
     Indication: NEUROPATHY PERIPHERAL
     Route: 048
     Dates: start: 2011

REACTIONS (2)
  - Thyroid disorder [Unknown]
  - Intentional drug misuse [Unknown]
